FAERS Safety Report 4619483-7 (Version None)
Quarter: 2005Q1

REPORT INFORMATION
  Report Type: 
  Country: None (occurrence: None)
  Receive Date: 20050325
  Receipt Date: 20050315
  Transmission Date: 20050727
  Serious: Yes (Death)
  Sender: FDA-Public Use
  Company Number: DE-JNJFOC-20050301645

PATIENT
  Age: 32 Year
  Sex: Male

DRUGS (4)
  1. RISPERDAL CONSTA [Suspect]
     Route: 030
  2. RISPERDAL CONSTA [Suspect]
     Route: 030
  3. LEPONEX [Interacting]
     Route: 049
  4. RISPERDAL [Concomitant]
     Route: 049

REACTIONS (10)
  - ASTHENIA [None]
  - BRAIN OEDEMA [None]
  - CARDIAC ARREST [None]
  - CARDIO-RESPIRATORY ARREST [None]
  - COMA [None]
  - DRUG INTERACTION [None]
  - HYPOREFLEXIA [None]
  - HYPOXIC ENCEPHALOPATHY [None]
  - PULMONARY EMBOLISM [None]
  - RESPIRATORY ARREST [None]
